FAERS Safety Report 15330262 (Version 2)
Quarter: 2018Q4

REPORT INFORMATION
  Report Type: Spontaneous
  Country: US (occurrence: US)
  Receive Date: 20180829
  Receipt Date: 20181008
  Transmission Date: 20190204
  Serious: No
  Sender: FDA-Public Use
  Company Number: US-SA-2018SA228856

PATIENT
  Age: 81 Year
  Sex: Female

DRUGS (2)
  1. LANTUS [Suspect]
     Active Substance: INSULIN GLARGINE
     Dosage: 28 U, EVERYDAY BEFORE BED
     Route: 065
  2. LANTUS [Suspect]
     Active Substance: INSULIN GLARGINE
     Indication: TYPE 2 DIABETES MELLITUS
     Dosage: 28 IU, EVERYDAY BEFORE BED
     Route: 065

REACTIONS (3)
  - Device issue [Unknown]
  - Device operational issue [Unknown]
  - Visual acuity reduced [Unknown]
